FAERS Safety Report 8477195-6 (Version None)
Quarter: 2012Q2

REPORT INFORMATION
  Report Type: 
  Country: None (occurrence: None)
  Receive Date: 20120625
  Receipt Date: 20120625
  Transmission Date: 20120825
  Serious: Yes (Other)
  Sender: FDA-Public Use
  Company Number: None

PATIENT
  Sex: Female
  Weight: 68.0396 kg

DRUGS (2)
  1. HYDROMORPHONE HCL [Suspect]
     Indication: PAIN
     Dosage: 1 OR 2  EVERY 4 HOURS PO ONCE
     Route: 048
     Dates: start: 20120615, end: 20120615
  2. HYDROMORPHONE HCL [Suspect]
     Indication: KNEE ARTHROPLASTY
     Dosage: 1 OR 2  EVERY 4 HOURS PO ONCE
     Route: 048
     Dates: start: 20120615, end: 20120615

REACTIONS (4)
  - COLD SWEAT [None]
  - MUSCLE RIGIDITY [None]
  - PRESYNCOPE [None]
  - DIARRHOEA [None]
